FAERS Safety Report 10136748 (Version 1)
Quarter: 2014Q2

REPORT INFORMATION
  Report Type: Spontaneous
  Country: US (occurrence: None)
  Receive Date: 20140428
  Receipt Date: 20140428
  Transmission Date: 20141212
  Serious: Yes (Other)
  Sender: FDA-Public Use
  Company Number: None

PATIENT
  Age: 62 Year
  Sex: Female
  Weight: 51.71 kg

DRUGS (3)
  1. ALENDRONATE SODIUM [Suspect]
     Indication: OSTEOPOROSIS
     Route: 048
     Dates: start: 201403
  2. CALCIUM [Concomitant]
  3. VITAMIN D [Concomitant]

REACTIONS (7)
  - Myalgia [None]
  - Arthralgia [None]
  - Neck pain [None]
  - Asthenia [None]
  - Pain [None]
  - Nausea [None]
  - Decreased appetite [None]
